FAERS Safety Report 4397259-6 (Version None)
Quarter: 2004Q3

REPORT INFORMATION
  Report Type: 
  Country: None (occurrence: None)
  Receive Date: 20040708
  Receipt Date: 20040625
  Transmission Date: 20050211
  Serious: Yes (Death, Hospitalization, Other)
  Sender: FDA-Public Use
  Company Number: 2004038392

PATIENT
  Age: 82 Year
  Sex: Male

DRUGS (10)
  1. NEURONTIN [Suspect]
     Indication: NEUROPATHIC PAIN
     Dosage: DAILY
     Dates: start: 20030101
  2. OXCARBAZEPINE (OXCARBAZEPINE) [Suspect]
     Indication: ANALGESIC EFFECT
     Dosage: 600 MG, DAILY
     Dates: end: 20040601
  3. TRAMADOL HCL [Concomitant]
  4. OMEPRAZOLE [Concomitant]
  5. ZOLPIDEM (ZOLPIDEM) [Concomitant]
  6. THIAMINE HCL [Concomitant]
  7. PYRIDOXINE HCL [Concomitant]
  8. PREDNISONE TAB [Concomitant]
  9. PARACETAMOL (PARACETAMOL) [Concomitant]
  10. DICLOFENAC SODIUM [Concomitant]

REACTIONS (42)
  - AGNOSIA [None]
  - ALLODYNIA [None]
  - ALPHA 2 GLOBULIN INCREASED [None]
  - AMYOTROPHY [None]
  - ANAEMIA [None]
  - ARRHYTHMIA [None]
  - ARTHRALGIA [None]
  - BLOOD IMMUNOGLOBULIN G DECREASED [None]
  - BLOOD PRESSURE SYSTOLIC DECREASED [None]
  - BURNING SENSATION [None]
  - CARDIOVASCULAR DISORDER [None]
  - CARPAL TUNNEL SYNDROME [None]
  - CERVICAL MYELOPATHY [None]
  - CERVICAL SPINAL STENOSIS [None]
  - DEMYELINATING POLYNEUROPATHY [None]
  - DISEASE RECURRENCE [None]
  - DYSPNOEA [None]
  - DYSSTASIA [None]
  - FATIGUE [None]
  - HEART RATE INCREASED [None]
  - HEPATIC STEATOSIS [None]
  - HYPERGAMMAGLOBULINAEMIA [None]
  - HYPERTENSION [None]
  - HYPOAESTHESIA [None]
  - HYPOALBUMINAEMIA [None]
  - HYPOKINESIA [None]
  - ILL-DEFINED DISORDER [None]
  - IMPAIRED DRIVING ABILITY [None]
  - JAUNDICE [None]
  - NEOPLASM RECURRENCE [None]
  - NEURALGIA [None]
  - PAIN IN EXTREMITY [None]
  - PARAESTHESIA [None]
  - PARANEOPLASTIC SYNDROME [None]
  - PERIPHERAL SENSORY NEUROPATHY [None]
  - RED BLOOD CELL SEDIMENTATION RATE INCREASED [None]
  - RHEUMATOID FACTOR INCREASED [None]
  - SERUM FERRITIN DECREASED [None]
  - SUDDEN DEATH [None]
  - TINEL'S SIGN [None]
  - VENTRICULAR EXTRASYSTOLES [None]
  - WEIGHT INCREASED [None]
